FAERS Safety Report 8774698 (Version 1)
Quarter: 2012Q4

REPORT INFORMATION
  Report Type: 
  Country: US (occurrence: US)
  Receive Date: 20120910
  Receipt Date: 20120910
  Transmission Date: 20130627
  Serious: No
  Sender: FDA-Public Use
  Company Number: US-PFIZER INC-2012220818

PATIENT
  Age: 33 Year
  Sex: Female
  Weight: 94.79 kg

DRUGS (3)
  1. NEURONTIN [Suspect]
     Indication: NERVE INJURY
     Dosage: UNK, 3x/day
     Route: 048
     Dates: start: 201111, end: 201201
  2. ULTRAM ER [Concomitant]
     Dosage: 300 mg, 1x/day
     Dates: start: 2010
  3. TRAZODONE [Concomitant]
     Dosage: 20 mg, 3x/day

REACTIONS (1)
  - Memory impairment [Not Recovered/Not Resolved]
